FAERS Safety Report 10705338 (Version 4)
Quarter: 2015Q2

REPORT INFORMATION
  Report Type: Spontaneous
  Country: TR (occurrence: TR)
  Receive Date: 20150112
  Receipt Date: 20150429
  Transmission Date: 20150821
  Serious: Yes (Other)
  Sender: FDA-Public Use
  Company Number: TR-PFIZER INC-2015006402

PATIENT
  Age: 59 Year
  Sex: Male

DRUGS (6)
  1. BARACLUDE [Concomitant]
     Active Substance: ENTECAVIR
  2. HEPATITIS B VACCINE [Concomitant]
     Active Substance: HEPATITIS B VIRUS VACCINE
  3. RAPAMUNE [Suspect]
     Active Substance: SIROLIMUS
     Indication: LIVER TRANSPLANT
     Dosage: 1 MG, 2X/DAY
     Dates: start: 20110429
  4. AFINITOR [Suspect]
     Active Substance: EVEROLIMUS
     Indication: HEPATIC NEOPLASM
  5. PROGRAF [Concomitant]
     Active Substance: TACROLIMUS\TACROLIMUS ANHYDROUS
  6. AFINITOR [Suspect]
     Active Substance: EVEROLIMUS
     Indication: ALPHA 1 FOETOPROTEIN INCREASED
     Dosage: 10 MG, DAILY
     Dates: start: 2014

REACTIONS (7)
  - Onychoclasis [Recovered/Resolved]
  - Rheumatic disorder [Recovered/Resolved]
  - Alpha 1 foetoprotein increased [Not Recovered/Not Resolved]
  - Sensory loss [Recovered/Resolved]
  - Off label use [Unknown]
  - C-reactive protein increased [Recovered/Resolved]
  - Dry mouth [Recovered/Resolved]

NARRATIVE: CASE EVENT DATE: 201408
